FAERS Safety Report 18404640 (Version 2)
Quarter: 2021Q2

REPORT INFORMATION
  Report Type: Spontaneous
  Country: IE (occurrence: IE)
  Receive Date: 20201020
  Receipt Date: 20210505
  Transmission Date: 20210717
  Serious: Yes (Congenital Anomaly)
  Sender: FDA-Public Use
  Company Number: IE-BAYER-2020-220153

PATIENT

DRUGS (1)
  1. KYLEENA [Suspect]
     Active Substance: LEVONORGESTREL
     Dosage: UNK
     Route: 064
     Dates: start: 20200131

REACTIONS (3)
  - Foetal exposure during pregnancy [None]
  - Limb malformation [None]
  - Skull malformation [None]

NARRATIVE: CASE EVENT DATE: 20201001
